FAERS Safety Report 20212888 (Version 2)
Quarter: 2022Q1

REPORT INFORMATION
  Report Type: Spontaneous
  Country: RU (occurrence: RU)
  Receive Date: 20211221
  Receipt Date: 20220111
  Transmission Date: 20220423
  Serious: Yes (Congenital Anomaly, Other)
  Sender: FDA-Public Use
  Company Number: RU-AMERICAN REGENT INC-2021003306

PATIENT
  Age: 2 Year
  Sex: Female

DRUGS (5)
  1. FERINJECT [Suspect]
     Active Substance: FERRIC CARBOXYMALTOSE
     Indication: Product used for unknown indication
     Dosage: UNK
     Route: 064
  2. FERINJECT [Suspect]
     Active Substance: FERRIC CARBOXYMALTOSE
     Indication: Iron deficiency anaemia
     Dosage: UNK
     Route: 042
  3. ACETAZOLAMIDE [Suspect]
     Active Substance: ACETAZOLAMIDE
     Indication: Hydrocephalus
     Dosage: UNK
     Route: 065
  4. ASPARCAM [Concomitant]
     Indication: Hydrocephalus
     Dosage: UNK
     Route: 065
  5. CHOLECALCIFEROL [Concomitant]
     Active Substance: CHOLECALCIFEROL
     Indication: Product used for unknown indication
     Dosage: 1,000?1,500 IU QD
     Route: 065

REACTIONS (7)
  - Hydrocephalus [Unknown]
  - Bone development abnormal [Unknown]
  - Femur fracture [Unknown]
  - Multiple fractures [Unknown]
  - Osteogenesis imperfecta [Unknown]
  - Foetal exposure during pregnancy [Unknown]
  - Psychomotor skills impaired [Unknown]

NARRATIVE: CASE EVENT DATE: 20180101
